FAERS Safety Report 9127465 (Version 1)
Quarter: 2013Q1

REPORT INFORMATION
  Report Type: Spontaneous
  Country: US (occurrence: US)
  Receive Date: 20130228
  Receipt Date: 20130228
  Transmission Date: 20140127
  Serious: No
  Sender: FDA-Public Use
  Company Number: US-GLAXOSMITHKLINE-A0978055A

PATIENT
  Age: 67 Year
  Sex: Female

DRUGS (4)
  1. LAMOTRIGINE [Suspect]
     Indication: ENCEPHALITIS VIRAL
     Dosage: 25MG TWICE PER DAY
     Route: 048
     Dates: start: 20080902
  2. SYNTHROID [Concomitant]
  3. METHYLPHENIDATE [Concomitant]
  4. AMITRIPTYLINE [Concomitant]

REACTIONS (3)
  - Depression [Recovered/Resolved]
  - Crying [Unknown]
  - Irritability [Unknown]
